FAERS Safety Report 13683208 (Version 6)
Quarter: 2017Q3

REPORT INFORMATION
  Report Type: Report from Study
  Country: US (occurrence: US)
  Receive Date: 20170623
  Receipt Date: 20170926
  Transmission Date: 20171127
  Serious: Yes (Hospitalization, Other)
  Sender: FDA-Public Use
  Company Number: US-ALEXION PHARMACEUTICALS INC-A201706542

PATIENT
  Age: 33 Year
  Sex: Male
  Weight: 126.98 kg

DRUGS (1)
  1. STRENSIQ [Suspect]
     Active Substance: ASFOTASE ALFA
     Indication: HYPOPHOSPHATASIA
     Dosage: 1 MG/KG, SIX TIMES/WEEK
     Route: 058
     Dates: start: 20151209

REACTIONS (14)
  - Addison^s disease [Unknown]
  - Glomerular filtration rate decreased [Unknown]
  - Pain [Unknown]
  - Osteocalcin decreased [Unknown]
  - Musculoskeletal disorder [Unknown]
  - Dyspnoea [Unknown]
  - Fatigue [Unknown]
  - Blood alkaline phosphatase abnormal [Unknown]
  - Pulmonary thrombosis [Unknown]
  - Nephrolithiasis [Unknown]
  - Chest pain [Unknown]
  - Drug ineffective [Unknown]
  - Neutralising antibodies positive [Unknown]
  - Low turnover osteopathy [Unknown]

NARRATIVE: CASE EVENT DATE: 201705
